FAERS Safety Report 4732732-X (Version None)
Quarter: 2005Q3

REPORT INFORMATION
  Report Type: 
  Country: None (occurrence: None)
  Receive Date: 20050801
  Receipt Date: 20050801
  Transmission Date: 20060218
  Serious: Yes (Hospitalization)
  Sender: FDA-Public Use
  Company Number: None

PATIENT
  Age: 59 Year
  Sex: Female
  Weight: 57 kg

DRUGS (1)
  1. ERTAPENEM     1000 MG     MERCK [Suspect]
     Indication: SOFT TISSUE INFECTION
     Dosage: 1000 MG   DAILY  INTRAVENOU
     Route: 042
     Dates: start: 20050712, end: 20050727

REACTIONS (1)
  - GRAND MAL CONVULSION [None]
